FAERS Safety Report 4869158-4 (Version None)
Quarter: 2005Q4

REPORT INFORMATION
  Report Type: 
  Country: None (occurrence: None)
  Receive Date: 20051228
  Receipt Date: 20051228
  Transmission Date: 20060501
  Serious: Yes (Disabling)
  Sender: FDA-Public Use
  Company Number: None

PATIENT
  Age: 64 Year
  Sex: Female

DRUGS (2)
  1. PULMICORT [Suspect]
     Indication: DYSPNOEA
     Dosage: 200 MG 1-2 PUFFS AS NEEDED
     Dates: start: 20051109, end: 20051202
  2. BENADRYL [Concomitant]

REACTIONS (3)
  - DEVICE MALFUNCTION [None]
  - INCORRECT DOSE ADMINISTERED [None]
  - NONSPECIFIC REACTION [None]
